FAERS Safety Report 4928307-X (Version None)
Quarter: 2006Q1

REPORT INFORMATION
  Report Type: 
  Country: None (occurrence: None)
  Receive Date: 20060223
  Receipt Date: 20060201
  Transmission Date: 20060701
  Serious: Yes (Death)
  Sender: FDA-Public Use
  Company Number: US200602000507

PATIENT
  Age: 38 Year
  Sex: Female

DRUGS (1)
  1. ZYPREXA [Suspect]
     Indication: MAJOR DEPRESSION
     Dosage: 20 MG, ORAL
     Route: 048

REACTIONS (1)
  - DIABETES MELLITUS INSULIN-DEPENDENT [None]
